FAERS Safety Report 8059667-1 (Version None)
Quarter: 2012Q1

REPORT INFORMATION
  Report Type: 
  Country: None (occurrence: None)
  Receive Date: 20120120
  Receipt Date: 20120112
  Transmission Date: 20120608
  Serious: Yes (Hospitalization)
  Sender: FDA-Public Use
  Company Number: PHEH2012US000518

PATIENT
  Sex: Female

DRUGS (13)
  1. LORAZEPAM [Concomitant]
     Dosage: 0.5 MG, PRN
  2. GILENYA [Suspect]
     Dosage: 0.5 MG, QD
     Route: 048
  3. SIMETHICONE [Concomitant]
     Dosage: 30 ML, Q6H
  4. KLONOPIN [Concomitant]
     Dosage: 0.15 MG, PRN
  5. MIRALAX [Concomitant]
     Dosage: 17 G, QD
  6. ALUMINIUM HYDROXIDE W/ MAGNESIUM HYDROXIDE [Concomitant]
     Dosage: UNK UKN, UNK
  7. GILENYA [Suspect]
     Indication: MULTIPLE SCLEROSIS
     Dosage: 0.5 MG, QD
     Route: 048
     Dates: start: 20110823, end: 20110928
  8. VITAMIN D [Concomitant]
     Dosage: 800 U, QD
  9. REMERON [Concomitant]
     Dosage: 15 MG, QD
  10. BACLOFEN [Concomitant]
     Dosage: 30 MG, QD
  11. OXYCODONE HCL [Concomitant]
     Dosage: 5 MG, Q3H
  12. SENNA [Concomitant]
     Dosage: 2 DF, BID
  13. ACETAMINOPHEN [Concomitant]
     Dosage: 650 MG, Q4H

REACTIONS (21)
  - PROGRESSIVE MULTIPLE SCLEROSIS [None]
  - CONSTIPATION [None]
  - HEADACHE [None]
  - DEPRESSION SUICIDAL [None]
  - CENTRAL NERVOUS SYSTEM LESION [None]
  - DYSARTHRIA [None]
  - MUSCLE SPASTICITY [None]
  - HEARING IMPAIRED [None]
  - BALANCE DISORDER [None]
  - VISUAL IMPAIRMENT [None]
  - DYSPNOEA [None]
  - MUSCULAR WEAKNESS [None]
  - PERONEAL NERVE PALSY [None]
  - DYSPHAGIA [None]
  - PANIC ATTACK [None]
  - PULMONARY FUNCTION TEST ABNORMAL [None]
  - LIVER FUNCTION TEST ABNORMAL [None]
  - GAIT DISTURBANCE [None]
  - PARESIS [None]
  - RHINORRHOEA [None]
  - INSOMNIA [None]
